FAERS Safety Report 9180086 (Version 1)
Quarter: 2012Q4

REPORT INFORMATION
  Report Type: 
  Country: US (occurrence: US)
  Receive Date: 20121029
  Receipt Date: 20121029
  Transmission Date: 20130627
  Serious: No
  Sender: FDA-Public Use
  Company Number: US-009507513-1210USA011779

PATIENT
  Sex: Female

DRUGS (3)
  1. PEGINTRON [Suspect]
     Indication: HEPATITIS C
     Dosage: 150 Microgram, qw
     Route: 058
     Dates: start: 20120712
  2. TELAPREVIR [Suspect]
  3. RIBAPAK [Suspect]

REACTIONS (5)
  - Alopecia [Unknown]
  - Fatigue [Unknown]
  - Pruritus [Unknown]
  - Excoriation [Unknown]
  - Skin haemorrhage [Unknown]
